FAERS Safety Report 5316071-4 (Version None)
Quarter: 2007Q2

REPORT INFORMATION
  Report Type: 
  Country: None (occurrence: None)
  Receive Date: 20070503
  Receipt Date: 20070427
  Transmission Date: 20071010
  Serious: Yes (Other)
  Sender: FDA-Public Use
  Company Number: 2007PK00907

PATIENT
  Age: 27 Year
  Sex: Male

DRUGS (11)
  1. METOPROLOL TARTRATE [Suspect]
     Dates: start: 20061229, end: 20070107
  2. METOPROLOL TARTRATE [Suspect]
     Dates: start: 20070108
  3. CLOZAPINE [Suspect]
     Dates: start: 20070102, end: 20070105
  4. CLOZAPINE [Suspect]
     Dates: start: 20070106, end: 20070108
  5. CLOZAPINE [Suspect]
     Dates: start: 20070109, end: 20070115
  6. CLOZAPINE [Suspect]
     Dates: start: 20070116
  7. RISPERDAL [Suspect]
     Dates: start: 20070124, end: 20070126
  8. RISPERDAL [Suspect]
     Dates: start: 20070127
  9. NOZINAN [Concomitant]
     Dates: start: 20070111, end: 20070114
  10. NOZINAN [Concomitant]
     Dates: start: 20070115, end: 20070117
  11. NOZINAN [Concomitant]
     Dates: start: 20070118, end: 20070126

REACTIONS (2)
  - TACHYCARDIA [None]
  - WEIGHT INCREASED [None]
